FAERS Safety Report 7591263-2 (Version None)
Quarter: 2011Q3

REPORT INFORMATION
  Report Type: 
  Country: None (occurrence: None)
  Receive Date: 20110706
  Receipt Date: 20110624
  Transmission Date: 20111222
  Serious: No
  Sender: FDA-Public Use
  Company Number: US-BIOGENIDEC-2011BI019232

PATIENT
  Age: 18 Year
  Sex: Female

DRUGS (2)
  1. BENADRYL [Concomitant]
     Indication: PREMEDICATION
  2. TYSABRI [Suspect]
     Indication: MULTIPLE SCLEROSIS
     Route: 042
     Dates: start: 20110325

REACTIONS (6)
  - CHEST DISCOMFORT [None]
  - HYPERSENSITIVITY [None]
  - THROAT IRRITATION [None]
  - COUGH [None]
  - SWELLING [None]
  - DYSPNOEA [None]
